FAERS Safety Report 4604017-3 (Version None)
Quarter: 2005Q1

REPORT INFORMATION
  Report Type: 
  Country: None (occurrence: None)
  Receive Date: 20050308
  Receipt Date: 20050224
  Transmission Date: 20050727
  Serious: Yes (Hospitalization, Other)
  Sender: FDA-Public Use
  Company Number: 2004108436

PATIENT
  Sex: Female

DRUGS (4)
  1. CELEBREX [Suspect]
     Indication: ARTHRITIS
     Dosage: 200 MG (200 MG, 1 IN 1 D), ORAL
     Route: 048
     Dates: start: 20041004
  2. ROFECOXIB [Concomitant]
  3. ASPIRIN [Concomitant]
  4. TOCOPHEROL (TOCOPHEROL) [Concomitant]

REACTIONS (3)
  - HAEMORRHAGE [None]
  - INCISION SITE HAEMORRHAGE [None]
  - PERIPHERAL VASCULAR DISORDER [None]
